FAERS Safety Report 8964286 (Version 1)
Quarter: 2012Q4

REPORT INFORMATION
  Report Type: 
  Country: US (occurrence: US)
  Receive Date: 20121214
  Receipt Date: 20121214
  Transmission Date: 20130627
  Serious: No
  Sender: FDA-Public Use
  Company Number: US-GLAXOSMITHKLINE-A0962220A

PATIENT
  Age: 62 Year
  Sex: Male

DRUGS (6)
  1. AVODART [Suspect]
     Indication: BENIGN PROSTATIC HYPERPLASIA
     Route: 048
     Dates: start: 201110
  2. FLOMAX [Concomitant]
  3. METFORMIN [Concomitant]
  4. LOTREL [Concomitant]
  5. ASPIRIN [Concomitant]
  6. LORCET PLUS [Concomitant]

REACTIONS (3)
  - Ejaculation delayed [Not Recovered/Not Resolved]
  - Semen volume decreased [Unknown]
  - Ejaculation failure [Unknown]
